FAERS Safety Report 5117869-8 (Version None)
Quarter: 2006Q3

REPORT INFORMATION
  Report Type: 
  Country: None (occurrence: None)
  Receive Date: 20060929
  Receipt Date: 20060908
  Transmission Date: 20061208
  Serious: Yes (Hospitalization)
  Sender: FDA-Public Use
  Company Number: JP-MERCK-0609USA02083

PATIENT
  Age: 59 Year
  Sex: Female

DRUGS (6)
  1. FOSAMAX [Suspect]
     Indication: OSTEOPOROSIS
     Route: 048
     Dates: start: 20040203, end: 20060827
  2. ONEALFA [Concomitant]
     Route: 048
     Dates: start: 20040203
  3. CYANOCOBALAMIN [Concomitant]
     Route: 048
     Dates: start: 20040203
  4. AMOBAN [Concomitant]
     Route: 048
     Dates: start: 20040203
  5. VOLTAREN [Concomitant]
     Route: 048
     Dates: start: 20060228, end: 20060531
  6. SELBEX [Concomitant]
     Route: 048
     Dates: start: 20060228, end: 20060531

REACTIONS (2)
  - ANAEMIA [None]
  - GASTRIC ULCER HAEMORRHAGE [None]
